FAERS Safety Report 12633198 (Version 2)
Quarter: 2016Q3

REPORT INFORMATION
  Report Type: Spontaneous
  Country: US (occurrence: US)
  Receive Date: 20160808
  Receipt Date: 20160808
  Transmission Date: 20161109
  Serious: No
  Sender: FDA-Public Use
  Company Number: US-BEH-2016059135

PATIENT
  Age: 79 Year
  Sex: Female
  Weight: 67 kg

DRUGS (22)
  1. HIZENTRA [Suspect]
     Active Substance: HUMAN IMMUNOGLOBULIN G
     Route: 058
  2. HIZENTRA [Suspect]
     Active Substance: HUMAN IMMUNOGLOBULIN G
     Indication: IMMUNODEFICIENCY COMMON VARIABLE
     Route: 058
  3. HIZENTRA [Suspect]
     Active Substance: HUMAN IMMUNOGLOBULIN G
     Route: 058
     Dates: start: 20151016
  4. CALCIUM ACETATE. [Concomitant]
     Active Substance: CALCIUM ACETATE
  5. HIZENTRA [Suspect]
     Active Substance: HUMAN IMMUNOGLOBULIN G
     Route: 058
  6. SPIRIVA [Concomitant]
     Active Substance: TIOTROPIUM BROMIDE MONOHYDRATE
     Dosage: CAP W/DEV
  7. EPI-PEN AUTOINJECTOR [Concomitant]
  8. ALBUTEROL SULFATE. [Concomitant]
     Active Substance: ALBUTEROL SULFATE
  9. MULTIVITAMINS TABLET [Concomitant]
  10. ACETAMINOPHEN. [Concomitant]
     Active Substance: ACETAMINOPHEN
  11. IPRATROPIUM BROMIDE. [Concomitant]
     Active Substance: IPRATROPIUM BROMIDE
  12. SPIRIVA [Concomitant]
     Active Substance: TIOTROPIUM BROMIDE MONOHYDRATE
     Dosage: CAP W/DEV
  13. VITAMIN D3 [Concomitant]
     Active Substance: CHOLECALCIFEROL
  14. PROAIR HFA [Concomitant]
     Active Substance: ALBUTEROL SULFATE
     Dosage: HFA AER AD
  15. DIPHENHYDRAMINE. [Concomitant]
     Active Substance: DIPHENHYDRAMINE
  16. ANUSOL-HC [Concomitant]
     Dosage: SUPP.RECT
  17. MIRALAX [Concomitant]
     Active Substance: POLYETHYLENE GLYCOL 3350
     Dosage: DOSE POWDER
  18. SYNTHROID [Concomitant]
     Active Substance: LEVOTHYROXINE SODIUM
  19. ADVAIR DISKUS [Concomitant]
     Active Substance: FLUTICASONE PROPIONATE\SALMETEROL XINAFOATE
     Dosage: 500-50 MCG BLST W^/DEV
  20. ADVIL [Concomitant]
     Active Substance: IBUPROFEN
  21. AZELASTINE HCL [Concomitant]
     Active Substance: AZELASTINE HYDROCHLORIDE
     Dosage: SPRAY/PUMP
  22. NEXIUM [Concomitant]
     Active Substance: ESOMEPRAZOLE MAGNESIUM

REACTIONS (1)
  - Influenza [Unknown]

NARRATIVE: CASE EVENT DATE: 201512
